FAERS Safety Report 8262075-1 (Version None)
Quarter: 2012Q2

REPORT INFORMATION
  Report Type: 
  Country: None (occurrence: None)
  Receive Date: 20120402
  Receipt Date: 20120323
  Transmission Date: 20120825
  Serious: Yes (Hospitalization, Other)
  Sender: FDA-Public Use
  Company Number: 2012SP016675

PATIENT
  Age: 51 Year
  Sex: Female

DRUGS (4)
  1. REMERON [Suspect]
     Indication: PRODUCT USED FOR UNKNOWN INDICATION
     Dosage: 30 MG;ONCE;PO
     Route: 048
     Dates: start: 20110627, end: 20110627
  2. LORAZEPAM [Suspect]
     Indication: PRODUCT USED FOR UNKNOWN INDICATION
     Dosage: 1.0 MG;ONCE;PO
     Route: 048
     Dates: start: 20110627, end: 20110627
  3. OXAZEPAM [Suspect]
     Indication: PRODUCT USED FOR UNKNOWN INDICATION
     Dosage: 15 MG;ONCE;PO
     Route: 048
     Dates: start: 20110627, end: 20110627
  4. ALCOHOL (ETHANOL) [Suspect]
     Indication: PRODUCT USED FOR UNKNOWN INDICATION

REACTIONS (7)
  - TACHYCARDIA [None]
  - BLOOD PRESSURE SYSTOLIC INCREASED [None]
  - COMA [None]
  - OVERDOSE [None]
  - SUICIDE ATTEMPT [None]
  - TOXICITY TO VARIOUS AGENTS [None]
  - OXYGEN SATURATION DECREASED [None]
